FAERS Safety Report 10211102 (Version 1)
Quarter: 2014Q2

REPORT INFORMATION
  Report Type: Spontaneous
  Country: US (occurrence: None)
  Receive Date: 20140530
  Receipt Date: 20140530
  Transmission Date: 20141212
  Serious: No
  Sender: FDA-Public Use
  Company Number: None

PATIENT
  Age: 64 Year
  Sex: Female

DRUGS (6)
  1. SUBOXONE [Suspect]
     Indication: DRUG DEPENDENCE
  2. SUBOXONE [Suspect]
     Indication: PAIN
  3. METOPROLOL [Concomitant]
  4. CITALOPRAM [Concomitant]
  5. B-12 [Concomitant]
  6. VITAMIN D 5000 [Concomitant]

REACTIONS (15)
  - Hyperhidrosis [None]
  - Asthenia [None]
  - Tooth loss [None]
  - Drug withdrawal syndrome [None]
  - Dry mouth [None]
  - Dental caries [None]
  - Aphagia [None]
  - Parosmia [None]
  - Weight decreased [None]
  - Gingivitis [None]
  - Tooth fracture [None]
  - Toothache [None]
  - Pain in jaw [None]
  - Headache [None]
  - Facial pain [None]
